FAERS Safety Report 18458958 (Version 1)
Quarter: 2020Q4

REPORT INFORMATION
  Report Type: Spontaneous
  Country: GB (occurrence: GB)
  Receive Date: 20201103
  Receipt Date: 20201103
  Transmission Date: 20210114
  Serious: Yes (Hospitalization)
  Sender: FDA-Public Use
  Company Number: NVSC2020GB289468

PATIENT
  Age: 56 Year
  Sex: Female

DRUGS (12)
  1. DOCETAXEL. [Suspect]
     Active Substance: DOCETAXEL
     Indication: BREAST CANCER METASTATIC
     Dosage: 140 MG, Q3W (EVERY 3 WEEK)
     Route: 042
     Dates: start: 20150709, end: 20151022
  2. TRASTUZUMAB. [Suspect]
     Active Substance: TRASTUZUMAB
     Indication: BREAST CANCER METASTATIC
     Dosage: 567 MG, Q3W(EVERY 3 WEEK)
     Route: 042
     Dates: start: 20150708
  3. PREDNISOLONE. [Concomitant]
     Active Substance: PREDNISOLONE
     Indication: LOWER RESPIRATORY TRACT INFECTION
     Dosage: UNK
     Route: 048
     Dates: start: 201601, end: 20160203
  4. TRASTUZUMAB. [Suspect]
     Active Substance: TRASTUZUMAB
     Dosage: 441 MG, Q3W(EVERY 3 WEEK)
     Route: 042
     Dates: start: 20150730
  5. PERTUZUMAB. [Suspect]
     Active Substance: PERTUZUMAB
     Indication: BREAST CANCER METASTATIC
     Dosage: 840 MG, Q3W (EVERY 3 WEEK)
     Route: 042
     Dates: start: 20150709, end: 20150709
  6. AMOXICILLIN. [Concomitant]
     Active Substance: AMOXICILLIN
     Indication: URINARY TRACT INFECTION
     Dosage: UNK(EVERY 0.33 DAY)
     Route: 048
     Dates: start: 20150918, end: 20150922
  7. DENOSUMAB [Concomitant]
     Active Substance: DENOSUMAB
     Indication: METASTASES TO BONE
     Dosage: 120 MG, UNKNOWN
     Route: 058
     Dates: start: 20160810
  8. ZOMORPH [Concomitant]
     Active Substance: MORPHINE SULFATE
     Indication: PRODUCT USED FOR UNKNOWN INDICATION
     Dosage: 10 MG (EVERY 0.5 DAY)
     Route: 048
     Dates: start: 20150703
  9. PERTUZUMAB. [Suspect]
     Active Substance: PERTUZUMAB
     Dosage: 420 MG, Q3W (EVERY 3 WEEK)
     Route: 042
     Dates: start: 20150730
  10. AMOXICILLIN. [Concomitant]
     Active Substance: AMOXICILLIN
     Dosage: UNK (EVERY 0.33 DAY)
     Route: 048
     Dates: start: 20151016, end: 201510
  11. ANASTROZOLE. [Suspect]
     Active Substance: ANASTROZOLE
     Indication: BREAST CANCER METASTATIC
     Dosage: 1 MG, QD(EVERY 1 DAY)
     Route: 048
     Dates: start: 20151202
  12. SALBUTAMOL [Concomitant]
     Active Substance: ALBUTEROL
     Indication: PRODUCT USED FOR UNKNOWN INDICATION
     Dosage: UNK (EVERY 0.5 DAY)
     Route: 065

REACTIONS (2)
  - Headache [Not Recovered/Not Resolved]
  - Neck pain [Not Recovered/Not Resolved]

NARRATIVE: CASE EVENT DATE: 20170212
